FAERS Safety Report 5928747-6 (Version None)
Quarter: 2008Q4

REPORT INFORMATION
  Report Type: 
  Country: None (occurrence: None)
  Receive Date: 20081023
  Receipt Date: 20081016
  Transmission Date: 20090506
  Serious: Yes (Hospitalization)
  Sender: FDA-Public Use
  Company Number: US-WYE-H06010108

PATIENT
  Sex: Female
  Weight: 47.67 kg

DRUGS (8)
  1. PRISTIQ [Suspect]
     Indication: DEPRESSION
     Route: 048
     Dates: start: 20080909, end: 20080912
  2. RISEDRONATE SODIUM [Concomitant]
     Indication: OSTEOPOROSIS
     Dates: end: 20080912
  3. PRAVASTATIN [Concomitant]
     Indication: HYPERCHOLESTEROLAEMIA
     Dates: end: 20080912
  4. COREG [Concomitant]
     Indication: HYPERTENSION
     Dates: end: 20080912
  5. METFORMIN HYDROCHLORIDE [Concomitant]
     Indication: TYPE 2 DIABETES MELLITUS
     Route: 048
     Dates: end: 20080912
  6. LEXAPRO [Concomitant]
     Indication: DEPRESSION
     Dosage: UNKNOWN DOSE DAILY
     Route: 048
     Dates: end: 20080909
  7. LEXAPRO [Concomitant]
     Indication: ANXIETY
  8. ASPIRIN [Concomitant]
     Indication: ATRIAL FIBRILLATION
     Dates: end: 20080912

REACTIONS (2)
  - DYSKINESIA [None]
  - PARAESTHESIA [None]
